FAERS Safety Report 4900134-9 (Version None)
Quarter: 2006Q1

REPORT INFORMATION
  Report Type: 
  Country: None (occurrence: None)
  Receive Date: 20060203
  Receipt Date: 20051219
  Transmission Date: 20060701
  Serious: Yes (Hospitalization)
  Sender: FDA-Public Use
  Company Number: NL-BRISTOL-MYERS SQUIBB COMPANY-13220199

PATIENT
  Age: 57 Year
  Sex: Male
  Weight: 97 kg

DRUGS (5)
  1. CARBOPLATIN [Suspect]
     Indication: TRANSITIONAL CELL CARCINOMA
     Route: 042
     Dates: start: 20050524, end: 20050524
  2. GEMCITABINE HCL [Suspect]
     Indication: TRANSITIONAL CELL CARCINOMA
     Route: 042
     Dates: start: 20050524, end: 20050524
  3. FUROSEMIDE [Concomitant]
     Dates: start: 20050817, end: 20050827
  4. ACENOCOUMAROL [Concomitant]
     Dates: start: 20050513
  5. NEURONTIN [Concomitant]
     Dates: start: 20041217, end: 20050831

REACTIONS (4)
  - HEADACHE [None]
  - NAUSEA [None]
  - THROMBOTIC THROMBOCYTOPENIC PURPURA [None]
  - VOMITING [None]
